FAERS Safety Report 9990404 (Version 1)
Quarter: 2014Q1

REPORT INFORMATION
  Report Type: Report from Study
  Country: US (occurrence: US)
  Receive Date: 20140310
  Receipt Date: 20140310
  Transmission Date: 20141002
  Serious: No
  Sender: FDA-Public Use
  Company Number: US-ABBVIE-13P-163-1134898-00

PATIENT
  Age: 54 Year
  Sex: Female

DRUGS (11)
  1. HUMIRA [Suspect]
     Indication: PSORIASIS
     Dates: start: 20130710
  2. ATENOLOL [Concomitant]
     Indication: HYPERTENSION
     Dosage: 15 MG DAILY
  3. HYZAAR [Concomitant]
     Indication: HYPERTENSION
     Dosage: 15/25 DAILY
  4. FUROSEMIDE [Concomitant]
     Indication: SWELLING
     Dosage: 10 MG DAILY
  5. WELLBUTRIN [Concomitant]
     Indication: ANXIETY
     Dosage: DAILY
  6. WELLBUTRIN [Concomitant]
     Indication: DEPRESSION
  7. LEXAPRO [Concomitant]
     Indication: ANXIETY
     Dosage: DAILY
  8. LEXAPRO [Concomitant]
     Indication: DEPRESSION
  9. MIRAPEX [Concomitant]
     Indication: RESTLESS LEGS SYNDROME
  10. TOPICAL PRESCRIPTIONS [Concomitant]
     Indication: PSORIASIS
  11. TOPICAL PRESCRIPTIONS [Concomitant]
     Indication: PSORIASIS

REACTIONS (2)
  - Injection site pain [Recovered/Resolved]
  - Injection site pain [Recovered/Resolved]
